FAERS Safety Report 6509539-6 (Version None)
Quarter: 2009Q4

REPORT INFORMATION
  Report Type: 
  Country: None (occurrence: None)
  Receive Date: 20091222
  Receipt Date: 20091215
  Transmission Date: 20100525
  Serious: Yes (Death)
  Sender: FDA-Public Use
  Company Number: US-CELGENEUS-163-21880-09101065

PATIENT
  Sex: Male

DRUGS (4)
  1. REVLIMID [Suspect]
     Indication: MULTIPLE MYELOMA
     Route: 048
     Dates: start: 20090401, end: 20090101
  2. REVLIMID [Suspect]
     Route: 048
     Dates: start: 20070101
  3. REVLIMID [Suspect]
     Dosage: 15MG, 10MG
     Route: 048
     Dates: start: 20070201
  4. REVLIMID [Suspect]
     Route: 048
     Dates: start: 20080901

REACTIONS (1)
  - DEATH [None]
